FAERS Safety Report 11487581 (Version 1)
Quarter: 2015Q3

REPORT INFORMATION
  Report Type: Report from Study
  Country: DE (occurrence: DE)
  Receive Date: 20150910
  Receipt Date: 20150910
  Transmission Date: 20151125
  Serious: Yes (Hospitalization, Other)
  Sender: FDA-Public Use
  Company Number: DE-BRISTOL-MYERS SQUIBB COMPANY-BMS-2015-041294

PATIENT
  Age: 60 Year
  Sex: Female
  Weight: 52 kg

DRUGS (1)
  1. ABATACEPT [Suspect]
     Active Substance: ABATACEPT
     Indication: RHEUMATOID ARTHRITIS
     Dosage: 125 MG, UNK
     Route: 065

REACTIONS (3)
  - Pneumonia [Recovering/Resolving]
  - Hypokalaemia [Unknown]
  - Hyponatraemia [Unknown]

NARRATIVE: CASE EVENT DATE: 20150608
